FAERS Safety Report 9729139 (Version 1)
Quarter: 2013Q4

REPORT INFORMATION
  Report Type: Spontaneous
  Country: JP (occurrence: JP)
  Receive Date: 20131204
  Receipt Date: 20131204
  Transmission Date: 20140711
  Serious: Yes (Hospitalization)
  Sender: FDA-Public Use
  Company Number: JP-PFIZER INC-2013343606

PATIENT
  Age: 73 Year
  Sex: Female

DRUGS (4)
  1. CELECOX [Suspect]
     Indication: PAIN IN EXTREMITY
     Dosage: UNK
     Route: 048
     Dates: start: 2013
  2. WARFARIN [Interacting]
     Indication: ATRIAL FIBRILLATION
     Dosage: 2 MG, DAILY
     Route: 048
     Dates: end: 2013
  3. UFT [Concomitant]
     Indication: CHEMOTHERAPY
     Dosage: UNK
     Route: 048
     Dates: start: 2013, end: 2013
  4. UZEL [Concomitant]
     Indication: CHEMOTHERAPY
     Dosage: UNK
     Route: 048
     Dates: start: 2013, end: 2013

REACTIONS (2)
  - Coagulopathy [Recovering/Resolving]
  - Drug interaction [Unknown]
